FAERS Safety Report 23770649 (Version 2)
Quarter: 2024Q2

REPORT INFORMATION
  Report Type: Spontaneous
  Country: RS (occurrence: RS)
  Receive Date: 20240422
  Receipt Date: 20240429
  Transmission Date: 20240716
  Serious: Yes (Other)
  Sender: FDA-Public Use
  Company Number: RS-009507513-2404SRB008626

PATIENT
  Sex: Male

DRUGS (1)
  1. PEMBROLIZUMAB [Suspect]
     Active Substance: PEMBROLIZUMAB
     Indication: Lung adenocarcinoma
     Dosage: UNK
     Dates: start: 2023

REACTIONS (6)
  - Hepatitis [Unknown]
  - Pulmonary fibrosis [Unknown]
  - Rash [Recovered/Resolved]
  - Diarrhoea [Unknown]
  - Lung consolidation [Unknown]
  - Transaminases increased [Unknown]

NARRATIVE: CASE EVENT DATE: 20240101
